FAERS Safety Report 7730002-9 (Version None)
Quarter: 2011Q3

REPORT INFORMATION
  Report Type: 
  Country: None (occurrence: None)
  Receive Date: 20110906
  Receipt Date: 20110825
  Transmission Date: 20111222
  Serious: Yes (Other)
  Sender: FDA-Public Use
  Company Number: PHFR2011GB01792

PATIENT
  Sex: Female

DRUGS (6)
  1. LEVOTHYROXINE SODIUM [Concomitant]
     Indication: HYPOTHYROIDISM
     Dosage: 50 UG/DAY
     Route: 048
  2. CLOZAPINE [Suspect]
     Indication: SCHIZOPHRENIA
     Dosage: 50 MG/DAY
     Route: 048
     Dates: start: 20110211
  3. CLOZAPINE [Suspect]
     Dosage: 100 MG/DAY
     Route: 048
  4. LITHIUM CARBONATE [Concomitant]
     Indication: AFFECTIVE DISORDER
     Dosage: 1000 MG/DAY
     Route: 048
  5. PREMPAK [Concomitant]
     Indication: HORMONE REPLACEMENT THERAPY
     Dosage: 0.625 MG/DAY
  6. OMEPRAZOLE [Concomitant]
     Indication: GASTRIC ULCER
     Dosage: 20 MG/DAY
     Route: 048

REACTIONS (6)
  - SEDATION [None]
  - ASTHENIA [None]
  - MENTAL DISORDER [None]
  - MALAISE [None]
  - GENERAL PHYSICAL CONDITION ABNORMAL [None]
  - FEELING ABNORMAL [None]
